FAERS Safety Report 23302318 (Version 1)
Quarter: 2023Q4

REPORT INFORMATION
  Report Type: Spontaneous
  Country: US (occurrence: US)
  Receive Date: 20231215
  Receipt Date: 20231215
  Transmission Date: 20240110
  Serious: Yes (Hospitalization, Other)
  Sender: FDA-Public Use
  Company Number: US-IMMUNOGEN, INC.-US-IMGN-23-00720

PATIENT

DRUGS (2)
  1. ELAHERE [Suspect]
     Active Substance: MIRVETUXIMAB SORAVTANSINE-GYNX
     Indication: Product used for unknown indication
     Dosage: 6 DOSES IN TOTAL
     Route: 065
  2. ELAHERE [Suspect]
     Active Substance: MIRVETUXIMAB SORAVTANSINE-GYNX
     Dosage: 5 MILLIGRAM AIBW
     Route: 065

REACTIONS (5)
  - Paralysis [Not Recovered/Not Resolved]
  - Atrial fibrillation [Unknown]
  - Weight decreased [Unknown]
  - Dehydration [Unknown]
  - Ocular toxicity [Recovered/Resolved]

NARRATIVE: CASE EVENT DATE: 20231101
